FAERS Safety Report 6618956-5 (Version None)
Quarter: 2010Q1

REPORT INFORMATION
  Report Type: 
  Country: None (occurrence: None)
  Receive Date: 20100302
  Receipt Date: 20100222
  Transmission Date: 20100710
  Serious: Yes (Hospitalization)
  Sender: FDA-Public Use
  Company Number: CIO10002652

PATIENT
  Age: 62 Year
  Sex: Female

DRUGS (3)
  1. BISMUTH SUBSALICYLATE [Suspect]
     Indication: ABDOMINAL DISCOMFORT
     Dosage: 15 ML, 1 ONLY, ORAL
     Route: 048
     Dates: start: 20100205, end: 20100205
  2. BISMUTH SUBSALICYLATE [Suspect]
     Indication: VOMITING
     Dosage: 15 ML, 1 ONLY, ORAL
     Route: 048
     Dates: start: 20100205, end: 20100205
  3. SYNTHROID [Concomitant]

REACTIONS (2)
  - ANAPHYLACTIC SHOCK [None]
  - URTICARIA [None]
